FAERS Safety Report 18807617 (Version 1)
Quarter: 2021Q1

REPORT INFORMATION
  Report Type: Spontaneous
  Country: US (occurrence: US)
  Receive Date: 20210129
  Receipt Date: 20210129
  Transmission Date: 20210419
  Serious: No
  Sender: FDA-Public Use
  Company Number: US-JNJFOC-20210130547

PATIENT
  Age: 51 Year
  Sex: Male
  Weight: 90.8 kg

DRUGS (1)
  1. MENS ROGAINE EXTRA STRENGTH [Suspect]
     Active Substance: MINOXIDIL
     Indication: ALOPECIA
     Dosage: THE PRODUCT LAST ADMINISTERED ON 12?JAN?2021.
     Route: 061
     Dates: start: 20201012

REACTIONS (1)
  - Drug ineffective [Unknown]
